FAERS Safety Report 9742728 (Version 1)
Quarter: 2013Q4

REPORT INFORMATION
  Report Type: Spontaneous
  Country: US (occurrence: US)
  Receive Date: 20131210
  Receipt Date: 20131210
  Transmission Date: 20140711
  Serious: No
  Sender: FDA-Public Use
  Company Number: US-GILEAD-2009-0025895

PATIENT
  Age: 68 Year
  Sex: Female

DRUGS (7)
  1. LETAIRIS [Suspect]
     Indication: COR PULMONALE CHRONIC
     Route: 048
     Dates: start: 20090610
  2. REVATIO [Concomitant]
  3. HYDROCHLOROTHIAZIDE [Concomitant]
  4. LISINOPRIL [Concomitant]
  5. METOPROLOL [Concomitant]
  6. PRAVACHOL [Concomitant]
  7. CYCLOBENZAPRINE [Concomitant]

REACTIONS (3)
  - Vision blurred [Not Recovered/Not Resolved]
  - Lacrimation increased [Not Recovered/Not Resolved]
  - Sensitivity of teeth [Unknown]
